FAERS Safety Report 4745399-1 (Version None)
Quarter: 2005Q3

REPORT INFORMATION
  Report Type: 
  Country: None (occurrence: None)
  Receive Date: 20050812
  Receipt Date: 20040902
  Transmission Date: 20060218
  Serious: Yes (Disabling, Other)
  Sender: FDA-Public Use
  Company Number: PHHO2004US13644

PATIENT
  Age: 73 Year
  Sex: Female

DRUGS (9)
  1. VISUDYNE [Suspect]
     Indication: CHOROIDAL NEOVASCULARISATION
     Dosage: 6 MG/M^2 DAILY IV
     Route: 042
     Dates: start: 20040811, end: 20040811
  2. VISUDYNE [Suspect]
     Indication: MACULAR DEGENERATION
     Dosage: 6 MG/M^2 DAILY IV
     Route: 042
     Dates: start: 20040811, end: 20040811
  3. KENALOG [Suspect]
     Indication: CHOROIDAL NEOVASCULARISATION
     Dosage: 4 MG DAILY EY
     Dates: start: 20040811, end: 20040811
  4. KENALOG [Suspect]
     Indication: MACULAR DEGENERATION
     Dosage: 4 MG DAILY EY
     Dates: start: 20040811, end: 20040811
  5. FOSAMAX [Concomitant]
  6. VITAMIN E [Concomitant]
  7. LUTEIN [Concomitant]
  8. MULTI-VITAMINS [Concomitant]
  9. BETIMOL [Concomitant]

REACTIONS (1)
  - VISUAL ACUITY REDUCED [None]
